FAERS Safety Report 9768417 (Version 1)
Quarter: 2013Q4

REPORT INFORMATION
  Report Type: Spontaneous
  Country: US (occurrence: US)
  Receive Date: 20131217
  Receipt Date: 20131217
  Transmission Date: 20140711
  Serious: Yes (Life-Threatening, Hospitalization)
  Sender: FDA-Public Use
  Company Number: PHHY2013US144045

PATIENT
  Age: 47 Year
  Sex: Female

DRUGS (10)
  1. VINORELBINE [Suspect]
     Dosage: 59 MG (30 MG/M2) INTRAVENOUSLY ON DAY 1 AND DAY 15 IN A 28-DAY CYCLE
     Route: 042
  2. COUMADINE [Concomitant]
     Dosage: 2.5 MG, UNK
  3. COUMADINE [Concomitant]
     Dosage: 5 MG, UNK
  4. OXYCODONE [Concomitant]
     Indication: PAIN
  5. CARBOPLATIN [Concomitant]
     Indication: CHEMOTHERAPY
  6. PACLITAXEL [Concomitant]
     Indication: CHEMOTHERAPY
  7. DOCETAXEL [Concomitant]
  8. GEMCITABINE [Concomitant]
  9. BEVACIZUMAB [Concomitant]
  10. IFOSFAMIDE [Concomitant]

REACTIONS (9)
  - Inappropriate antidiuretic hormone secretion [Recovered/Resolved]
  - Decreased appetite [Recovered/Resolved]
  - Fatigue [Recovered/Resolved]
  - Myalgia [Recovered/Resolved]
  - Hyponatraemia [Recovered/Resolved]
  - Renal failure acute [Recovered/Resolved]
  - Failure to thrive [Recovered/Resolved]
  - Pleural effusion [Recovered/Resolved]
  - Pneumonia [Recovered/Resolved]
